FAERS Safety Report 6926240-5 (Version None)
Quarter: 2010Q3

REPORT INFORMATION
  Report Type: 
  Country: None (occurrence: None)
  Receive Date: 20100816
  Receipt Date: 20100804
  Transmission Date: 20110219
  Serious: Yes (Other)
  Sender: FDA-Public Use
  Company Number: JP-PFIZER INC-2010093508

PATIENT

DRUGS (3)
  1. AZULFIDINE [Suspect]
     Dosage: 500 MG, 1X/DAY
     Route: 048
     Dates: start: 20080401
  2. AZULFIDINE [Suspect]
     Dosage: UNK
     Route: 048
     Dates: start: 20081001
  3. AZULFIDINE [Suspect]
     Dosage: 500 MG, 1X/DAY
     Route: 048
     Dates: start: 20081201

REACTIONS (2)
  - ECZEMA [None]
  - RHEUMATOID ARTHRITIS [None]
